FAERS Safety Report 23284166 (Version 1)
Quarter: 2023Q4

REPORT INFORMATION
  Report Type: Spontaneous
  Country: US (occurrence: US)
  Receive Date: 20231211
  Receipt Date: 20231211
  Transmission Date: 20240110
  Serious: No
  Sender: FDA-Public Use
  Company Number: US-SA-SAC20231205000757

PATIENT
  Sex: Female

DRUGS (11)
  1. DUPIXENT [Suspect]
     Active Substance: DUPILUMAB
     Indication: Psoriasis
     Dosage: 300 MG QOW
     Route: 058
  2. ZERVIATE [Concomitant]
     Active Substance: CETIRIZINE HYDROCHLORIDE
  3. FOLIC ACID [Concomitant]
     Active Substance: FOLIC ACID
  4. FOLTX [Concomitant]
     Active Substance: CYANOCOBALAMIN CO-57\FOLIC ACID\PYRIDOXINE HYDROCHLORIDE
     Dosage: 1.13-25-MG
  5. HUMIRA [Concomitant]
     Active Substance: ADALIMUMAB
     Dosage: PSK 40MG/0.4ML
  6. POTASSIUM [Concomitant]
     Active Substance: POTASSIUM
  7. PREDNISONE [Concomitant]
     Active Substance: PREDNISONE
  8. PREGABALIN [Concomitant]
     Active Substance: PREGABALIN
  9. SUMATRIPTAN [Concomitant]
     Active Substance: SUMATRIPTAN
  10. TIZANIDINE [Concomitant]
     Active Substance: TIZANIDINE
  11. VALACYCLOVIR [Concomitant]
     Active Substance: VALACYCLOVIR HYDROCHLORIDE

REACTIONS (2)
  - Eczema [Not Recovered/Not Resolved]
  - Product use in unapproved indication [Unknown]
